FAERS Safety Report 19752904 (Version 3)
Quarter: 2022Q2

REPORT INFORMATION
  Report Type: Report from Study
  Country: ES (occurrence: ES)
  Receive Date: 20210826
  Receipt Date: 20220627
  Transmission Date: 20220721
  Serious: Yes (Hospitalization, Other)
  Sender: FDA-Public Use
  Company Number: ES-TAKEDA-2021TUS052275

PATIENT
  Age: 2 Year
  Sex: Male

DRUGS (12)
  1. TEDUGLUTIDE [Suspect]
     Active Substance: TEDUGLUTIDE
     Indication: Short-bowel syndrome
     Dosage: 0.35 MILLIGRAM, QD
     Route: 042
     Dates: start: 20201119, end: 20210721
  2. TEDUGLUTIDE [Suspect]
     Active Substance: TEDUGLUTIDE
     Indication: Short-bowel syndrome
     Dosage: 0.35 MILLIGRAM, QD
     Route: 042
     Dates: start: 20201119, end: 20210721
  3. TEDUGLUTIDE [Suspect]
     Active Substance: TEDUGLUTIDE
     Indication: Short-bowel syndrome
     Dosage: 0.35 MILLIGRAM, QD
     Route: 042
     Dates: start: 20201119, end: 20210721
  4. TEDUGLUTIDE [Suspect]
     Active Substance: TEDUGLUTIDE
     Indication: Short-bowel syndrome
     Dosage: 0.35 MILLIGRAM, QD
     Route: 042
     Dates: start: 20201119, end: 20210721
  5. TEDUGLUTIDE [Suspect]
     Active Substance: TEDUGLUTIDE
     Dosage: 0.35 MILLIGRAM, QD
     Route: 042
     Dates: start: 202012, end: 202108
  6. TEDUGLUTIDE [Suspect]
     Active Substance: TEDUGLUTIDE
     Dosage: 0.35 MILLIGRAM, QD
     Route: 042
     Dates: start: 202012, end: 202108
  7. TEDUGLUTIDE [Suspect]
     Active Substance: TEDUGLUTIDE
     Dosage: 0.35 MILLIGRAM, QD
     Route: 042
     Dates: start: 202012, end: 202108
  8. TEDUGLUTIDE [Suspect]
     Active Substance: TEDUGLUTIDE
     Dosage: 0.35 MILLIGRAM, QD
     Route: 042
     Dates: start: 202012, end: 202108
  9. MORPHINE [Concomitant]
     Active Substance: MORPHINE
     Indication: Pain
     Dosage: 0.40 MILLIGRAM, TID
     Route: 048
     Dates: start: 20201217
  10. CHLORPROMAZINE [Concomitant]
     Active Substance: CHLORPROMAZINE
     Indication: Palliative care
     Dosage: 8 MILLIGRAM, TID
     Route: 048
  11. VITAMIN K [Concomitant]
     Active Substance: PHYTONADIONE
     Dosage: 2.5 MILLIGRAM, QD
     Route: 042
  12. OMEPRAZOLE [Concomitant]
     Active Substance: OMEPRAZOLE
     Indication: Gastrointestinal disorder
     Dosage: 6 MILLIGRAM, QD
     Route: 048

REACTIONS (1)
  - Device related sepsis [Recovered/Resolved]

NARRATIVE: CASE EVENT DATE: 20210702
